FAERS Safety Report 7289917-0 (Version None)
Quarter: 2011Q1

REPORT INFORMATION
  Report Type: 
  Country: None (occurrence: None)
  Receive Date: 20110214
  Receipt Date: 20110130
  Transmission Date: 20110831
  Serious: Yes (Hospitalization)
  Sender: FDA-Public Use
  Company Number: CA-ELI_LILLY_AND_COMPANY-CA201102000285

PATIENT
  Age: 80 Year
  Sex: Female

DRUGS (10)
  1. CALCIUM [Concomitant]
  2. PLAVIX [Concomitant]
  3. FORTEO [Suspect]
     Indication: OSTEOPOROSIS
     Dosage: 20 UG, DAILY (1/D)
     Route: 058
     Dates: start: 20101126, end: 20110121
  4. LIPITOR [Concomitant]
  5. NORVASC [Concomitant]
  6. COZAAR [Concomitant]
  7. SYNTHROID [Concomitant]
  8. IRON [Concomitant]
  9. TYLENOL W/ CODEINE NO. 3 [Concomitant]
  10. METOPROLOL [Concomitant]

REACTIONS (2)
  - PAIN IN EXTREMITY [None]
  - LOWER LIMB FRACTURE [None]
